FAERS Safety Report 5889973-8 (Version None)
Quarter: 2008Q3

REPORT INFORMATION
  Report Type: 
  Country: None (occurrence: None)
  Receive Date: 20080919
  Receipt Date: 20080910
  Transmission Date: 20090109
  Serious: Yes (Hospitalization)
  Sender: FDA-Public Use
  Company Number: IT-WYE-H06018708

PATIENT
  Sex: Male

DRUGS (6)
  1. AMIODAR [Suspect]
     Indication: ARRHYTHMIA
     Route: 048
     Dates: start: 20080801, end: 20080827
  2. AMIODAR [Interacting]
     Dosage: UNSPECIFIED
     Route: 048
     Dates: start: 20080101
  3. LANSOX [Concomitant]
     Dosage: UNSPECIFIED
     Route: 048
  4. CARDICOR [Concomitant]
     Dosage: UNSPECIFIED
     Route: 048
  5. ROSUVASTATIN [Interacting]
     Indication: HYPERCHOLESTEROLAEMIA
     Route: 048
     Dates: start: 20080801, end: 20080827
  6. COUMADIN [Concomitant]
     Dosage: UNSPECIFIED
     Route: 048

REACTIONS (3)
  - DRUG INTERACTION [None]
  - RENAL FAILURE ACUTE [None]
  - RHABDOMYOLYSIS [None]
